FAERS Safety Report 6730855 (Version 8)
Quarter: 2018Q4

REPORT INFORMATION
  Report Type: Spontaneous
  Country: JP (occurrence: JP)
  Receive Date: 20080819
  Receipt Date: 20181030
  Transmission Date: 20190205
  Serious: Yes (Hospitalization, Other)
  Sender: FDA-Public Use
  Company Number: PHHY2008JP05508

PATIENT
  Age: 53 Year
  Sex: Female

DRUGS (2)
  1. FEMARA [Suspect]
     Active Substance: LETROZOLE
     Indication: BREAST CANCER
  2. FEMARA [Suspect]
     Active Substance: LETROZOLE
     Indication: BREAST CANCER STAGE IV
     Dosage: 2.5 MG, QD
     Route: 048
     Dates: start: 20070615, end: 20070906

REACTIONS (8)
  - Rash generalised [Recovering/Resolving]
  - Dermatomyositis [Recovering/Resolving]
  - Erythema [Unknown]
  - Pyrexia [Unknown]
  - Cystitis haemorrhagic [Unknown]
  - Muscular weakness [Unknown]
  - Myalgia [Unknown]
  - Muscle enzyme increased [Unknown]

NARRATIVE: CASE EVENT DATE: 200708
